FAERS Safety Report 18385385 (Version 2)
Quarter: 2020Q4

REPORT INFORMATION
  Report Type: Spontaneous
  Country: PT (occurrence: PT)
  Receive Date: 20201014
  Receipt Date: 20201030
  Transmission Date: 20210114
  Serious: Yes (Other)
  Sender: FDA-Public Use
  Company Number: PT-AUROBINDO-AUR-APL-2020-051837

PATIENT
  Age: 75 Year
  Sex: Female

DRUGS (1)
  1. CIPROFLOXACIN. [Suspect]
     Active Substance: CIPROFLOXACIN
     Indication: DIARRHOEA INFECTIOUS
     Dosage: UNK
     Route: 065

REACTIONS (7)
  - Leukocytosis [Unknown]
  - Abdominal pain lower [Unknown]
  - Hypoalbuminaemia [Unknown]
  - Cytomegalovirus infection reactivation [Unknown]
  - Oedema peripheral [Unknown]
  - Renal impairment [Unknown]
  - Hypotension [Unknown]
